FAERS Safety Report 15084760 (Version 1)
Quarter: 2018Q2

REPORT INFORMATION
  Report Type: Spontaneous
  Country: US (occurrence: US)
  Receive Date: 20180628
  Receipt Date: 20180628
  Transmission Date: 20180711
  Serious: Yes (Hospitalization)
  Sender: FDA-Public Use
  Company Number: US-OTSUKA-2017_020040

PATIENT
  Sex: Male

DRUGS (1)
  1. ABILIFY [Suspect]
     Active Substance: ARIPIPRAZOLE
     Indication: BIPOLAR DISORDER
     Dosage: 1 DF, UNK (1DF=10 MG TO 5 MG)
     Route: 065
     Dates: start: 2007, end: 2018

REACTIONS (7)
  - Mental disorder [Unknown]
  - Injury [Unknown]
  - Obsessive-compulsive disorder [Unknown]
  - Gambling [Not Recovered/Not Resolved]
  - Emotional distress [Unknown]
  - Economic problem [Unknown]
  - Compulsive shopping [Not Recovered/Not Resolved]
